FAERS Safety Report 8598806-0 (Version None)
Quarter: 2012Q3

REPORT INFORMATION
  Report Type: 
  Country: None (occurrence: None)
  Receive Date: 20120816
  Receipt Date: 20120809
  Transmission Date: 20120928
  Serious: Yes (Hospitalization)
  Sender: FDA-Public Use
  Company Number: US-GLAXOSMITHKLINE-A0989142A

PATIENT
  Age: 71 Year
  Sex: Female
  Weight: 80 kg

DRUGS (2)
  1. LAPATINIB [Suspect]
     Indication: COLON CANCER METASTATIC
     Dosage: 1250MG PER DAY
     Route: 048
     Dates: start: 20120712
  2. BORTEZOMIB [Suspect]
     Indication: COLON CANCER METASTATIC
     Dosage: 1.85MG WEEKLY
     Route: 042
     Dates: start: 20120712

REACTIONS (3)
  - PAIN [None]
  - INCONTINENCE [None]
  - CONFUSIONAL STATE [None]
